FAERS Safety Report 25052596 (Version 1)
Quarter: 2025Q1

REPORT INFORMATION
  Report Type: Other
  Country: QA (occurrence: QA)
  Receive Date: 20250307
  Receipt Date: 20250307
  Transmission Date: 20250409
  Serious: Yes (Other)
  Sender: B BRAUN
  Company Number: QA-B.Braun Medical Inc.-2172486

PATIENT
  Age: 6 Year

DRUGS (1)
  1. SODIUM CHLORIDE [Suspect]
     Active Substance: SODIUM CHLORIDE

REACTIONS (4)
  - Lactic acidosis [Unknown]
  - Tachycardia [Unknown]
  - Respiratory alkalosis [Unknown]
  - Hyperventilation [Unknown]
